FAERS Safety Report 26026436 (Version 1)
Quarter: 2025Q4

REPORT INFORMATION
  Report Type: Spontaneous
  Country: IN (occurrence: IN)
  Receive Date: 20251111
  Receipt Date: 20251111
  Transmission Date: 20260117
  Serious: Yes (Other)
  Sender: PFIZER
  Company Number: IN-PFIZER INC-202500080538

PATIENT
  Age: 46 Year
  Sex: Female
  Weight: 47 kg

DRUGS (3)
  1. LORLATINIB [Suspect]
     Active Substance: LORLATINIB
     Indication: Lung adenocarcinoma
     Dosage: UNK
     Dates: start: 202504
  2. LORLATINIB [Suspect]
     Active Substance: LORLATINIB
     Dosage: 100 MG, 1X/DAY (ONCE DAILY)
     Route: 048
  3. LORLATINIB [Suspect]
     Active Substance: LORLATINIB
     Dosage: 50 MG, 1X/DAY (25 MG X2; ONCE DAILY FOR 30 DAYS)
     Route: 048

REACTIONS (5)
  - Cerebral amyloid angiopathy [Unknown]
  - Cerebral ischaemia [Unknown]
  - Hypercholesterolaemia [Unknown]
  - Blood triglycerides increased [Unknown]
  - Fatigue [Unknown]
